FAERS Safety Report 9174620 (Version 3)
Quarter: 2013Q2

REPORT INFORMATION
  Report Type: Spontaneous
  Country: JP (occurrence: JP)
  Receive Date: 20130320
  Receipt Date: 20130418
  Transmission Date: 20140414
  Serious: Yes (Hospitalization, Other)
  Sender: FDA-Public Use
  Company Number: JP-PFIZER INC-2013085447

PATIENT
  Age: 77 Year
  Sex: Male

DRUGS (2)
  1. VFEND [Suspect]
     Indication: ASPERGILLUS INFECTION
     Dosage: UNK
     Route: 048
     Dates: start: 200708
  2. AMPICILLIN SODIUM W/SULBACTAM SODIUM [Concomitant]
     Indication: BACTERIAL INFECTION
     Dosage: UNK
     Route: 041
     Dates: start: 200811

REACTIONS (1)
  - Zygomycosis [Unknown]
